FAERS Safety Report 23066497 (Version 1)
Quarter: 2023Q4

REPORT INFORMATION
  Report Type: Spontaneous
  Country: US (occurrence: US)
  Receive Date: 20231015
  Receipt Date: 20231015
  Transmission Date: 20240110
  Serious: No
  Sender: FDA-Public Use
  Company Number: US-JNJFOC-20230965493

PATIENT
  Sex: Male

DRUGS (1)
  1. VISINE L.R. [Suspect]
     Active Substance: OXYMETAZOLINE HYDROCHLORIDE
     Indication: Ocular hyperaemia
     Dosage: 1 DROP; PRODUCT START DATE: BEFORE 2004
     Route: 047

REACTIONS (1)
  - Expired product administered [Unknown]
